FAERS Safety Report 7132385-X (Version None)
Quarter: 2010Q4

REPORT INFORMATION
  Report Type: 
  Country: None (occurrence: None)
  Receive Date: 20101129
  Receipt Date: 20101129
  Transmission Date: 20110411
  Serious: No
  Sender: FDA-Public Use
  Company Number: None

PATIENT
  Sex: Female
  Weight: 109.5 kg

DRUGS (13)
  1. ZOMETA [Suspect]
     Dosage: 4 MG
  2. QUADRAMET [Suspect]
     Dosage: 123.9 MCI
  3. WELLBUTRIN [Concomitant]
  4. CELEBREX [Concomitant]
  5. LIBRIUM [Concomitant]
  6. KLONOPIN [Concomitant]
  7. LEXAPRO [Concomitant]
  8. NEXIUM [Concomitant]
  9. FEOSOL [Concomitant]
  10. GLUCOVANCE [Concomitant]
  11. NOVOLOG [Concomitant]
  12. LANTUS [Concomitant]
  13. ZESTRIL [Concomitant]

REACTIONS (2)
  - ASTHENIA [None]
  - MALIGNANT NEOPLASM PROGRESSION [None]
